FAERS Safety Report 13869059 (Version 1)
Quarter: 2017Q3

REPORT INFORMATION
  Report Type: Spontaneous
  Country: US (occurrence: US)
  Receive Date: 20170815
  Receipt Date: 20170815
  Transmission Date: 20171127
  Serious: No
  Sender: FDA-Public Use
  Company Number: US-PFIZER INC-2017349523

PATIENT
  Sex: Female

DRUGS (2)
  1. LIPITOR [Suspect]
     Active Substance: ATORVASTATIN CALCIUM
     Dosage: 40 MG, DAILY
  2. LYRICA [Suspect]
     Active Substance: PREGABALIN
     Dosage: 100 MG, THREE TIMES A DAY

REACTIONS (32)
  - Thinking abnormal [Unknown]
  - Sleep disorder [Unknown]
  - Musculoskeletal stiffness [Unknown]
  - Appetite disorder [Unknown]
  - Dry mouth [Unknown]
  - Memory impairment [Unknown]
  - Asthenia [Unknown]
  - Fatigue [Unknown]
  - Palpitations [Unknown]
  - Joint swelling [Unknown]
  - Alopecia [Unknown]
  - Headache [Unknown]
  - Blood pressure increased [Unknown]
  - Weight increased [Unknown]
  - Dry eye [Unknown]
  - Chest pain [Unknown]
  - Muscle spasms [Unknown]
  - Peripheral swelling [Unknown]
  - Anxiety [Unknown]
  - Nervousness [Unknown]
  - Arthralgia [Unknown]
  - Malaise [Unknown]
  - Blister [Unknown]
  - Lymphadenopathy [Unknown]
  - Paraesthesia [Unknown]
  - Depression [Unknown]
  - Hypoaesthesia [Unknown]
  - Balance disorder [Unknown]
  - Abdominal pain upper [Unknown]
  - Myalgia [Unknown]
  - Dizziness [Unknown]
  - Pain [Unknown]
